FAERS Safety Report 9186270 (Version 3)
Quarter: 2014Q4

REPORT INFORMATION
  Report Type: Report from Study
  Country: JP (occurrence: JP)
  Receive Date: 20130325
  Receipt Date: 20141204
  Transmission Date: 20150529
  Serious: Yes (Life-Threatening)
  Sender: FDA-Public Use
  Company Number: JP-GLAXOSMITHKLINE-B0875633A

PATIENT
  Age: 45 Year
  Sex: Female
  Weight: 58 kg

DRUGS (17)
  1. PAZOPANIB [Suspect]
     Active Substance: PAZOPANIB
     Indication: UTERINE LEIOMYOSARCOMA
     Route: 048
     Dates: start: 20130309, end: 20130311
  2. PRIMPERAN [Concomitant]
     Active Substance: METOCLOPRAMIDE HYDROCHLORIDE
     Route: 051
     Dates: start: 20130309
  3. LEUPLIN [Concomitant]
     Active Substance: LEUPROLIDE ACETATE
     Route: 058
     Dates: start: 20121210, end: 20130107
  4. RINDERON V [Concomitant]
     Active Substance: BETAMETHASONE VALERATE
     Indication: UTERINE LEIOMYOSARCOMA
     Route: 065
  5. OXYCONTIN [Concomitant]
     Active Substance: OXYCODONE HYDROCHLORIDE
     Indication: UTERINE LEIOMYOSARCOMA
     Route: 048
  6. GASLON N_OD [Concomitant]
     Active Substance: IRSOGLADINE MALEATE
     Indication: UTERINE LEIOMYOSARCOMA
     Route: 048
  7. ADOAIR [Concomitant]
     Active Substance: FLUTICASONE PROPIONATE\SALMETEROL XINAFOATE
     Indication: ASTHMA
     Route: 055
  8. TULOBUTEROL [Concomitant]
     Active Substance: TULOBUTEROL
     Indication: ASTHMA
     Route: 050
  9. ROPION [Concomitant]
     Active Substance: FLURBIPROFEN AXETIL
     Indication: CANCER PAIN
     Route: 042
     Dates: start: 20130309
  10. XYLOCAINE [Concomitant]
     Active Substance: LIDOCAINE HYDROCHLORIDE
     Indication: CANCER PAIN
     Route: 051
     Dates: start: 20130309
  11. CELECOX [Concomitant]
     Active Substance: CELECOXIB
     Indication: UTERINE LEIOMYOSARCOMA
     Route: 048
  12. CLIDAMACIN [Concomitant]
     Active Substance: CLINDAMYCIN\CLINDAMYCIN PHOSPHATE
     Indication: INFECTION
     Route: 051
     Dates: start: 20130309
  13. CEFTRIAXONE NA [Concomitant]
     Active Substance: CEFTRIAXONE
     Indication: INFECTION
     Route: 041
     Dates: start: 20130309
  14. ZYPREXA [Concomitant]
     Active Substance: OLANZAPINE
     Indication: UTERINE LEIOMYOSARCOMA
     Route: 048
  15. ZOMETA [Concomitant]
     Active Substance: ZOLEDRONIC ACID
     Route: 041
     Dates: start: 20110619, end: 20130107
  16. MEPTIN AIR [Concomitant]
     Active Substance: PROCATEROL HYDROCHLORIDE
     Indication: ASTHMA
     Route: 055
  17. OXIFAST [Concomitant]
     Indication: CANCER PAIN
     Route: 051
     Dates: start: 20130309

REACTIONS (1)
  - Supraventricular tachycardia [Recovered/Resolved]

NARRATIVE: CASE EVENT DATE: 20130310
